FAERS Safety Report 6502086-7 (Version None)
Quarter: 2009Q4

REPORT INFORMATION
  Report Type: 
  Country: None (occurrence: None)
  Receive Date: 20091214
  Receipt Date: 20091204
  Transmission Date: 20100525
  Serious: Yes (Death, Life-Threatening)
  Sender: FDA-Public Use
  Company Number: 2009EU004672

PATIENT
  Age: 54 Year
  Sex: Male

DRUGS (4)
  1. PROGRAF [Suspect]
     Indication: LIVER TRANSPLANT
     Dosage: ORAL; /D,ORAL
     Route: 048
     Dates: start: 20090326, end: 20090326
  2. PROGRAF [Suspect]
     Indication: LIVER TRANSPLANT
     Dosage: ORAL; /D,ORAL
     Route: 048
     Dates: start: 20090301, end: 20090428
  3. CELLCEPT [Suspect]
     Indication: LIVER TRANSPLANT
     Dosage: ORAL
     Route: 048
     Dates: start: 20090301
  4. NEORAL [Suspect]
     Dosage: ORAL
     Route: 048
     Dates: start: 20090428

REACTIONS (5)
  - BILE DUCT NECROSIS [None]
  - ENCEPHALITIS [None]
  - LUNG DISORDER [None]
  - SEPTIC SHOCK [None]
  - URINARY TRACT INFECTION ENTEROCOCCAL [None]
